FAERS Safety Report 6238740-4 (Version None)
Quarter: 2009Q2

REPORT INFORMATION
  Report Type: 
  Country: None (occurrence: None)
  Receive Date: 20090617
  Receipt Date: 20090617
  Transmission Date: 20091009
  Serious: No
  Sender: FDA-Public Use
  Company Number: None

PATIENT
  Age: 38 Year
  Sex: Male
  Weight: 97.5234 kg

DRUGS (2)
  1. CREST PRO HEALTH TOOTHPASTE PROCTOR AND GAMBLE [Suspect]
     Indication: DENTAL DISORDER PROPHYLAXIS
     Dosage: 3-4 GRAMS DAILY PO
     Route: 048
     Dates: start: 20090329, end: 20090518
  2. CREST PRO HEALTH MOUTHWASH PROCTOR AND GAMBLE [Suspect]
     Indication: DENTAL DISORDER PROPHYLAXIS
     Dosage: 1.5 OZ DAILY PO
     Route: 048
     Dates: start: 20090329, end: 20090503

REACTIONS (5)
  - CAUSTIC INJURY [None]
  - IMPAIRED HEALING [None]
  - RASH [None]
  - SKIN EXFOLIATION [None]
  - TOOTH DISCOLOURATION [None]
